FAERS Safety Report 23352636 (Version 1)
Quarter: 2023Q4

REPORT INFORMATION
  Report Type: Spontaneous
  Country: US (occurrence: US)
  Receive Date: 20231230
  Receipt Date: 20231230
  Transmission Date: 20240110
  Serious: Yes (Other)
  Sender: FDA-Public Use
  Company Number: US-AUROBINDO-AUR-APL-2023-080492

PATIENT
  Age: 74 Year
  Sex: Female
  Weight: 51 kg

DRUGS (2)
  1. AZITHROMYCIN [Suspect]
     Active Substance: AZITHROMYCIN
     Indication: Bronchitis
     Dosage: UNK(TAKE 2 TABLETS FIRST DAY. SUBSEQUENT DAYS ONE TABLET. EACH DAY FOR THE NEX)
     Route: 065
     Dates: end: 20231217
  2. PREDNISONE [Concomitant]
     Active Substance: PREDNISONE
     Indication: Product used for unknown indication
     Dosage: 20 MILLIGRAM
     Route: 065
     Dates: start: 20231217

REACTIONS (6)
  - Blindness [Unknown]
  - Visual impairment [Unknown]
  - Metamorphopsia [Unknown]
  - Visual field defect [Unknown]
  - Aura [Unknown]
  - Therapy cessation [Unknown]
